FAERS Safety Report 21216924 (Version 1)
Quarter: 2022Q3

REPORT INFORMATION
  Report Type: Spontaneous
  Country: US (occurrence: None)
  Receive Date: 20220815
  Receipt Date: 20220815
  Transmission Date: 20221026
  Serious: No
  Sender: FDA-Public Use
  Company Number: None

PATIENT
  Sex: Female
  Weight: 54.43 kg

DRUGS (2)
  1. COPPER-CONTAINING INTRAUTERINE DEVICE (IUD) [Suspect]
     Active Substance: COPPER
  2. UNSPECIFIED INGREDIENT [Suspect]
     Active Substance: UNSPECIFIED INGREDIENT

REACTIONS (8)
  - Dysmenorrhoea [None]
  - Heavy menstrual bleeding [None]
  - Bedridden [None]
  - Dysmenorrhoea [None]
  - Product complaint [None]
  - Ovarian cyst [None]
  - Complication of device insertion [None]
  - Procedural pain [None]
